FAERS Safety Report 9974465 (Version 1)
Quarter: 2014Q1

REPORT INFORMATION
  Report Type: Report from Study
  Country: US (occurrence: US)
  Receive Date: 20140306
  Receipt Date: 20140306
  Transmission Date: 20141002
  Serious: No
  Sender: FDA-Public Use
  Company Number: US-ABBVIE-13P-163-1159037-00

PATIENT
  Age: 65 Year
  Sex: Male

DRUGS (6)
  1. HUMIRA [Suspect]
     Indication: PSORIATIC ARTHROPATHY
     Dates: start: 201310
  2. PROZAC [Concomitant]
     Indication: DEPRESSION
     Dosage: 40 MG (20 MG X 2 TABLETS) DAILY
  3. LISINOPRIL [Concomitant]
     Indication: HYPERTENSION
     Dosage: 40 MG (20 MG X 2 TABLETS) DAILY
  4. TRAZODONE [Concomitant]
     Indication: SLEEP DISORDER
  5. TRAZODONE [Concomitant]
     Indication: DEPRESSION
  6. HYDROXYCHLOROQUINE [Concomitant]
     Indication: PSORIATIC ARTHROPATHY
     Dosage: 40 MG (20 MG X 2 TABLETS) DAILY

REACTIONS (3)
  - Wrong technique in drug usage process [Not Recovered/Not Resolved]
  - Drug dose omission [Not Recovered/Not Resolved]
  - Psoriatic arthropathy [Not Recovered/Not Resolved]
